FAERS Safety Report 11806313 (Version 3)
Quarter: 2016Q1

REPORT INFORMATION
  Report Type: Spontaneous
  Country: JP (occurrence: JP)
  Receive Date: 20151207
  Receipt Date: 20160211
  Transmission Date: 20160525
  Serious: No
  Sender: FDA-Public Use
  Company Number: JP-JNJFOC-20151204293

PATIENT

DRUGS (1)
  1. DUROTEP MT PATCH [Suspect]
     Active Substance: FENTANYL
     Indication: PRODUCT USED FOR UNKNOWN INDICATION
     Route: 062

REACTIONS (3)
  - Off label use [Unknown]
  - Drug prescribing error [Unknown]
  - Therapeutic response decreased [Unknown]
